FAERS Safety Report 4963639-0 (Version None)
Quarter: 2006Q2

REPORT INFORMATION
  Report Type: 
  Country: None (occurrence: None)
  Receive Date: 20060405
  Receipt Date: 20060217
  Transmission Date: 20061013
  Serious: Yes (Disabling)
  Sender: FDA-Public Use
  Company Number: CH-BOEHRINGER INGELHEIM PHARMACEUTICALS, INC.-2006-DE-01185SI

PATIENT
  Sex: Male

DRUGS (4)
  1. PRADIF T [Suspect]
     Indication: BENIGN PROSTATIC HYPERPLASIA
     Route: 048
     Dates: start: 20060203, end: 20060217
  2. PRADIF T [Suspect]
     Indication: URINARY RETENTION
  3. ZOCOR [Concomitant]
  4. APIRIN CARDIO [Concomitant]

REACTIONS (2)
  - ACTIVITIES OF DAILY LIVING IMPAIRED [None]
  - DYSURIA [None]
